FAERS Safety Report 7576848-1 (Version None)
Quarter: 2011Q2

REPORT INFORMATION
  Report Type: 
  Country: None (occurrence: None)
  Receive Date: 20110628
  Receipt Date: 20081115
  Transmission Date: 20111010
  Serious: Yes (Other)
  Sender: FDA-Public Use
  Company Number: US-BAYER-200838760NA

PATIENT
  Age: 88 Year
  Sex: Male
  Weight: 86 kg

DRUGS (16)
  1. ACETYLSALICYLIC ACID SRT [Concomitant]
     Dosage: 81 MG, UNK
     Route: 048
     Dates: start: 20060801, end: 20060901
  2. VERSED [Concomitant]
     Dosage: 25 MG, ONCE
     Route: 042
     Dates: start: 20060830, end: 20060830
  3. TRASYLOL [Suspect]
     Indication: AORTIC DISSECTION
     Dosage: 50 ML/HR
     Route: 042
     Dates: start: 20060830, end: 20060830
  4. LEVOPHED [Concomitant]
     Dosage: 28MCG, UNK
     Route: 042
     Dates: start: 20060830
  5. PROTAMINE SULFATE [Concomitant]
     Dosage: 300 MG, ONCE
     Route: 042
     Dates: start: 20060830, end: 20060830
  6. HEPARIN [Concomitant]
     Dosage: 5000 U, UNK
     Route: 042
     Dates: start: 20060830
  7. FRESH FROZEN PLASMA [Concomitant]
     Dosage: 5 U, UNK
     Route: 042
     Dates: start: 20050830
  8. MORPHINE [Concomitant]
     Dosage: 8 MG, ONCE
     Route: 042
     Dates: start: 20060830, end: 20060830
  9. VANCOMYCIN [Concomitant]
     Dosage: 1 GM, ONCE
     Route: 042
     Dates: start: 20060830, end: 20060830
  10. POTASSIUM CHLORIDE [Concomitant]
     Dosage: 20 MG, ONCE
     Route: 042
     Dates: start: 20060830, end: 20060830
  11. TRASYLOL [Suspect]
     Indication: CORONARY ARTERY BYPASS
     Dosage: 10 ML, ONCE
     Route: 042
     Dates: start: 20060830, end: 20060830
  12. RED BLOOD CELLS [Concomitant]
     Dosage: 4 U, UNK
     Route: 042
     Dates: start: 20050830
  13. FENTANYL [Concomitant]
     Dosage: 42MCG ONCE
     Route: 042
     Dates: start: 20060830, end: 20060830
  14. NIPRIDE [Concomitant]
     Dosage: 26 MG, UNK
     Route: 042
     Dates: start: 20060830
  15. HEPARIN [Concomitant]
     Dosage: 5000U ONCE
     Dates: start: 20060830, end: 20060830
  16. VISIPAQUE [Concomitant]
     Indication: CATHETERISATION CARDIAC
     Dosage: 150 ML, UNK
     Dates: start: 20060829

REACTIONS (4)
  - RENAL FAILURE [None]
  - PAIN [None]
  - INJURY [None]
  - UNEVALUABLE EVENT [None]
